FAERS Safety Report 8779545 (Version 1)
Quarter: 2012Q4

REPORT INFORMATION
  Report Type: 
  Country: SE (occurrence: SE)
  Receive Date: 20120912
  Receipt Date: 20120912
  Transmission Date: 20130627
  Serious: Yes (Other)
  Sender: FDA-Public Use
  Company Number: SE-JNJFOC-20120903304

PATIENT
  Age: 39 Year
  Sex: Male

DRUGS (1)
  1. NICORETTE FRESHMINT 2MG GUM [Suspect]
     Indication: SMOKING CESSATION THERAPY
     Dosage: 1/3 of the 2 mg gum
     Route: 048
     Dates: start: 2001

REACTIONS (4)
  - Nicotine dependence [Not Recovered/Not Resolved]
  - Intentional drug misuse [Unknown]
  - Pain [Recovered/Resolved]
  - Wrong technique in drug usage process [Unknown]
